FAERS Safety Report 12452150 (Version 2)
Quarter: 2016Q2

REPORT INFORMATION
  Report Type: Spontaneous
  Country: JP (occurrence: JP)
  Receive Date: 20160609
  Receipt Date: 20160622
  Transmission Date: 20160815
  Serious: Yes (Hospitalization)
  Sender: FDA-Public Use
  Company Number: JP-TAKEDA-2016MPI005198

PATIENT
  Age: 9 Decade
  Sex: Female

DRUGS (3)
  1. VELCADE [Suspect]
     Active Substance: BORTEZOMIB
     Indication: PLASMA CELL MYELOMA
     Dosage: UNK
     Route: 058
     Dates: start: 20151125, end: 201605
  2. MELPHALAN [Concomitant]
     Active Substance: MELPHALAN
     Dosage: UNK
     Route: 048
  3. PREDONINE [Concomitant]
     Active Substance: PREDNISOLONE\PREDNISOLONE ACETATE\PREDNISOLONE SODIUM SUCCINATE
     Dosage: UNK
     Route: 065

REACTIONS (1)
  - Hepatic cirrhosis [Unknown]

NARRATIVE: CASE EVENT DATE: 201605
